FAERS Safety Report 5235948-1 (Version None)
Quarter: 2007Q1

REPORT INFORMATION
  Report Type: 
  Country: None (occurrence: None)
  Receive Date: 20070212
  Receipt Date: 20070131
  Transmission Date: 20070707
  Serious: Yes (Hospitalization)
  Sender: FDA-Public Use
  Company Number: US-ROCHE-474325

PATIENT
  Age: 65 Year
  Sex: Female
  Weight: 60.8 kg

DRUGS (5)
  1. BONIVA [Suspect]
     Indication: DRUG USE FOR UNKNOWN INDICATION
     Route: 065
     Dates: start: 20061128, end: 20061128
  2. SYNTHROID [Concomitant]
  3. FOLIC ACID [Concomitant]
     Dosage: REGIMEN: DAILY.
  4. ASPIRIN [Concomitant]
     Dosage: DRUG REPORTED AS ENTERIC COATED ASPIRIN. REGIMEN WAS REPORTED AS 325 DAILY.
  5. GLUCOSAMINE [Concomitant]
     Dosage: DRUG REPORTED AS GLUCOSAMINE CHONDROITIN. REGIMEN REPORTED AS 500MG.

REACTIONS (4)
  - CHEST PAIN [None]
  - DYSPNOEA [None]
  - HYPERSENSITIVITY [None]
  - NODULE [None]
